FAERS Safety Report 6428612-4 (Version None)
Quarter: 2009Q4

REPORT INFORMATION
  Report Type: 
  Country: None (occurrence: None)
  Receive Date: 20091105
  Receipt Date: 20091027
  Transmission Date: 20100525
  Serious: Yes (Hospitalization)
  Sender: FDA-Public Use
  Company Number: FR-PFIZER INC-2009288952

PATIENT
  Age: 81 Year
  Sex: Male

DRUGS (15)
  1. AMLOR [Suspect]
     Dosage: UNK
     Route: 048
     Dates: start: 20090427, end: 20090823
  2. ALLOPURINOL [Concomitant]
     Dosage: UNK
     Route: 048
     Dates: start: 20090427, end: 20090615
  3. OXYGEN [Concomitant]
  4. SPIRIVA [Concomitant]
  5. SYMBICORT [Concomitant]
  6. KARDEGIC [Concomitant]
  7. CRESTOR [Concomitant]
  8. LASILIX [Concomitant]
  9. DIFFU K [Concomitant]
  10. AERIUS [Concomitant]
  11. ARANESP [Concomitant]
  12. NITROGLYCERIN [Concomitant]
  13. ARIXTRA [Concomitant]
  14. UVEDOSE [Concomitant]
  15. TARDYFERON [Concomitant]

REACTIONS (2)
  - DERMATITIS EXFOLIATIVE [None]
  - EOSINOPHILIA [None]
